FAERS Safety Report 9458736 (Version 1)
Quarter: 2013Q3

REPORT INFORMATION
  Report Type: Spontaneous
  Country: US (occurrence: None)
  Receive Date: 20130812
  Receipt Date: 20130812
  Transmission Date: 20140515
  Serious: Yes (Other)
  Sender: FDA-Public Use
  Company Number: 001576467A

PATIENT
  Age: 12 Year
  Sex: Female

DRUGS (5)
  1. PROACTIV 1 RENEWING CLEANSER [Suspect]
     Indication: ACNE
     Dosage: ONCE DAILY DERMAL
     Dates: start: 20120601, end: 20130602
  2. PROACTIV 2 REPAIRING TREATMENT [Suspect]
     Indication: ACNE
     Dosage: ONCE DAILY DERMAL
     Dates: start: 20130601, end: 20130602
  3. PROACTIV DEEP CLEANSING WASH [Suspect]
     Dosage: ONCE DAILY DERMAL
     Dates: start: 20130601, end: 20130602
  4. PROACTIV ADVACNED BLEMISH TREATMENT [Suspect]
     Dosage: ONCE DAILY DERMAL
     Dates: start: 20130601, end: 20130602
  5. PROACTIV BLACKHEAD DISSOLVING GEL [Suspect]
     Dosage: ONCE DAILY DERMAL
     Dates: start: 20130601, end: 20130602

REACTIONS (5)
  - Erythema [None]
  - Swelling face [None]
  - Eye swelling [None]
  - Local swelling [None]
  - Visual acuity reduced [None]
